FAERS Safety Report 6437117-6 (Version None)
Quarter: 2009Q4

REPORT INFORMATION
  Report Type: 
  Country: None (occurrence: None)
  Receive Date: 20091112
  Receipt Date: 20091110
  Transmission Date: 20100525
  Serious: Yes (Other)
  Sender: FDA-Public Use
  Company Number: US-ROXANE LABORATORIES, INC.-2009-RO-01155RO

PATIENT

DRUGS (2)
  1. AZATHIOPRINE [Suspect]
     Indication: SYSTEMIC LUPUS ERYTHEMATOSUS
     Dosage: 100 MG
  2. DAPSONE [Concomitant]
     Indication: PYODERMA GANGRENOSUM

REACTIONS (2)
  - ADVERSE DRUG REACTION [None]
  - PYODERMA GANGRENOSUM [None]
